FAERS Safety Report 5588918-8 (Version None)
Quarter: 2007Q4

REPORT INFORMATION
  Report Type: 
  Country: None (occurrence: None)
  Receive Date: 20071212
  Receipt Date: 20070829
  Transmission Date: 20080405
  Serious: No
  Sender: FDA-Public Use
  Company Number: 2007RL000390

PATIENT
  Age: 76 Year
  Sex: Male

DRUGS (8)
  1. LOVAZA [Suspect]
     Indication: BLOOD TRIGLYCERIDES INCREASED
     Dosage: 2 GM;BID;PO ; 2 GM;BID;PO
     Route: 048
     Dates: start: 20070701, end: 20070101
  2. LOVAZA [Suspect]
     Indication: BLOOD TRIGLYCERIDES INCREASED
     Dosage: 2 GM;BID;PO ; 2 GM;BID;PO
     Route: 048
     Dates: start: 20070801
  3. PRAVACHOL [Concomitant]
  4. TENORMIN [Concomitant]
  5. PLAVIX [Concomitant]
  6. ASPIRIN [Concomitant]
  7. AVAPRO [Concomitant]
  8. UROXATRAL [Concomitant]

REACTIONS (3)
  - FATIGUE [None]
  - FREQUENT BOWEL MOVEMENTS [None]
  - PRURITUS ANI [None]
